FAERS Safety Report 7806452-9 (Version None)
Quarter: 2011Q4

REPORT INFORMATION
  Report Type: 
  Country: None (occurrence: None)
  Receive Date: 20111011
  Receipt Date: 20110929
  Transmission Date: 20120403
  Serious: Yes (Other)
  Sender: FDA-Public Use
  Company Number: US-PFIZER INC-2011241421

PATIENT
  Sex: Male

DRUGS (4)
  1. MORPHINE SULFATE [Suspect]
     Indication: PAIN
     Dosage: 60 MG, 2X/DAY
     Route: 048
     Dates: start: 20101101
  2. LORCET-HD [Suspect]
  3. OPANA [Suspect]
     Indication: PAIN
     Dosage: 20 MG, 2X/DAY
     Route: 048
     Dates: start: 20101001
  4. VICODIN [Suspect]
     Indication: PAIN
     Dosage: 10/650 MG
     Route: 048
     Dates: start: 20110301

REACTIONS (10)
  - PRODUCT TASTE ABNORMAL [None]
  - BRAIN INJURY [None]
  - INSOMNIA [None]
  - PRODUCT ODOUR ABNORMAL [None]
  - BRAIN STEM SYNDROME [None]
  - AGITATION [None]
  - RESPIRATORY DEPRESSION [None]
  - WEIGHT DECREASED [None]
  - HYPERSOMNIA [None]
  - HYPOACUSIS [None]
